FAERS Safety Report 9729536 (Version 3)
Quarter: 2015Q3

REPORT INFORMATION
  Report Type: Spontaneous
  Country: US (occurrence: US)
  Receive Date: 20131204
  Receipt Date: 20150804
  Transmission Date: 20151125
  Serious: No
  Sender: FDA-Public Use
  Company Number: US-GILEAD-2009-0021519

PATIENT
  Age: 27 Year
  Sex: Female
  Weight: 54.88 kg

DRUGS (10)
  1. LETAIRIS [Suspect]
     Active Substance: AMBRISENTAN
     Indication: PULMONARY ARTERIAL HYPERTENSION
     Route: 048
     Dates: start: 20090401
  2. REMODULIN [Concomitant]
     Active Substance: TREPROSTINIL
  3. PHENERGAN [Concomitant]
     Active Substance: PROMETHAZINE HYDROCHLORIDE
  4. NORMAL SALINE FLUSH [Concomitant]
     Active Substance: SODIUM CHLORIDE
  5. LOMOTIL [Concomitant]
     Active Substance: ATROPINE SULFATE\DIPHENOXYLATE HYDROCHLORIDE
  6. REVATIO [Concomitant]
     Active Substance: SILDENAFIL CITRATE
  7. STERILE WATER [Concomitant]
     Active Substance: WATER
  8. COUMADIN [Concomitant]
     Active Substance: WARFARIN SODIUM
  9. PERCOCET 5 [Concomitant]
  10. OXYGEN. [Concomitant]
     Active Substance: OXYGEN

REACTIONS (2)
  - Urticaria [Unknown]
  - Rash [Unknown]
